FAERS Safety Report 6612245-0 (Version None)
Quarter: 2010Q1

REPORT INFORMATION
  Report Type: 
  Country: None (occurrence: None)
  Receive Date: 20100223
  Receipt Date: 20100201
  Transmission Date: 20100710
  Serious: No
  Sender: FDA-Public Use
  Company Number: 2010-00217

PATIENT
  Age: 76 Year
  Sex: Male
  Weight: 79.3795 kg

DRUGS (3)
  1. ZICAM COLD REMEDY GEL SWABS [Suspect]
     Dosage: 3 SWABS
  2. LIPITOR [Concomitant]
  3. ASPIRIN [Concomitant]

REACTIONS (1)
  - ANOSMIA [None]
